FAERS Safety Report 14301879 (Version 1)
Quarter: 2017Q4

REPORT INFORMATION
  Report Type: Spontaneous
  Country: PL (occurrence: PL)
  Receive Date: 20171219
  Receipt Date: 20171219
  Transmission Date: 20180321
  Serious: Yes (Hospitalization)
  Sender: FDA-Public Use
  Company Number: PL-CIPLA LTD.-2017PL24866

PATIENT

DRUGS (15)
  1. BUDESONIDE. [Suspect]
     Active Substance: BUDESONIDE
     Dosage: UNK
     Route: 065
  2. MAGNESIUM SULPHATE [Suspect]
     Active Substance: MAGNESIUM SULFATE
     Dosage: UNK
     Route: 065
  3. OSELTAMIVIR [Suspect]
     Active Substance: OSELTAMIVIR
     Dosage: UNK
     Route: 065
  4. HEPARIN [Suspect]
     Active Substance: HEPARIN SODIUM
     Dosage: UNK
     Route: 065
  5. BETAMETHASONE DIPROPIONATE, BETAMETHASONE SODIUM PHOSPHATE [Suspect]
     Active Substance: BETAMETHASONE DIPROPIONATE\BETAMETHASONE SODIUM PHOSPHATE
     Dosage: UNK
     Route: 065
  6. CIPROFLOXACIN. [Suspect]
     Active Substance: CIPROFLOXACIN
     Dosage: UNK
     Route: 065
  7. METOPROLOL. [Suspect]
     Active Substance: METOPROLOL
     Dosage: UNK
     Route: 065
  8. TAZOBACTAM [Suspect]
     Active Substance: TAZOBACTAM
     Dosage: UNK
     Route: 065
  9. PIPERACILLIN [Suspect]
     Active Substance: PIPERACILLIN
     Dosage: UNK
     Route: 065
  10. DIAZEPAM. [Suspect]
     Active Substance: DIAZEPAM
     Dosage: UNK
     Route: 065
  11. ENOXAPARIN [Suspect]
     Active Substance: ENOXAPARIN
     Dosage: UNK
     Route: 065
  12. FLUCONAZOLE. [Suspect]
     Active Substance: FLUCONAZOLE
     Dosage: UNK
     Route: 065
  13. METHYLDOPA. [Suspect]
     Active Substance: METHYLDOPA
     Dosage: UNK
     Route: 065
  14. CEFUROXIME. [Suspect]
     Active Substance: CEFUROXIME
     Dosage: UNK
     Route: 065
  15. NITRENDIPINE [Suspect]
     Active Substance: NITRENDIPINE
     Dosage: UNK
     Route: 065

REACTIONS (11)
  - Hypertension [Unknown]
  - Tachypnoea [Recovered/Resolved]
  - Exposure during pregnancy [Unknown]
  - Vaginal haemorrhage [Unknown]
  - Blood creatine increased [Unknown]
  - Hypoaesthesia [Recovered/Resolved]
  - Chest pain [Recovered/Resolved]
  - Dyspnoea [Recovered/Resolved]
  - Oliguria [Unknown]
  - Drug ineffective [Unknown]
  - Abdominal pain lower [Unknown]
